FAERS Safety Report 7963371 (Version 2)
Quarter: 2012Q4

REPORT INFORMATION
  Report Type: 
  Country: US (occurrence: US)
  Receive Date: 20110527
  Receipt Date: 20121116
  Transmission Date: 20130627
  Serious: No
  Sender: FDA-Public Use
  Company Number: US-BIOGENIDEC-2011BI019074

PATIENT
  Sex: Female

DRUGS (2)
  1. TYSABRI [Suspect]
     Indication: MULTIPLE SCLEROSIS
     Route: 042
     Dates: start: 20110121, end: 20110414
  2. AVONEX [Concomitant]
     Indication: MULTIPLE SCLEROSIS
     Route: 030
     Dates: start: 20080913

REACTIONS (3)
  - Multiple sclerosis relapse [Not Recovered/Not Resolved]
  - Feeling hot [Unknown]
  - Aphasia [Not Recovered/Not Resolved]
